FAERS Safety Report 11465710 (Version 1)
Quarter: 2015Q3

REPORT INFORMATION
  Report Type: Report from Study
  Country: US (occurrence: US)
  Receive Date: 20150907
  Receipt Date: 20150907
  Transmission Date: 20151125
  Serious: Yes (Other)
  Sender: FDA-Public Use
  Company Number: US-BIOGENIDEC-2015BI121002

PATIENT
  Sex: Female

DRUGS (13)
  1. TECFIDERA [Suspect]
     Active Substance: DIMETHYL FUMARATE
     Indication: MULTIPLE SCLEROSIS
     Route: 048
     Dates: start: 20141015
  2. MOLOXICAM [Concomitant]
  3. MODAFIMIL [Concomitant]
  4. CLONAZAPAM [Concomitant]
  5. TOPIRAMATE. [Concomitant]
     Active Substance: TOPIRAMATE
  6. ZINC [Concomitant]
     Active Substance: ZINC\ZINC CHLORIDE
  7. TECFIDERA [Suspect]
     Active Substance: DIMETHYL FUMARATE
     Indication: MULTIPLE SCLEROSIS
     Route: 048
     Dates: start: 20141009, end: 20141014
  8. BETHANECHOL [Concomitant]
     Active Substance: BETHANECHOL
  9. MAGNESIUM [Concomitant]
     Active Substance: MAGNESIUM
  10. FLUOXETINE [Concomitant]
     Active Substance: FLUOXETINE\FLUOXETINE HYDROCHLORIDE
  11. VITAMIN B12 [Concomitant]
     Active Substance: CYANOCOBALAMIN
  12. VITAMIN D [Concomitant]
     Active Substance: CHOLECALCIFEROL
  13. CALCIUM+D [Concomitant]

REACTIONS (7)
  - Cardiac arrest [Recovered/Resolved]
  - Disturbance in attention [Unknown]
  - Seizure [Unknown]
  - Multiple sclerosis relapse [Unknown]
  - Gait disturbance [Unknown]
  - Headache [Unknown]
  - Drug intolerance [Unknown]
